FAERS Safety Report 9078857 (Version 1)
Quarter: 2013Q1

REPORT INFORMATION
  Report Type: Report from Study
  Country: US (occurrence: US)
  Receive Date: 20130130
  Receipt Date: 20130130
  Transmission Date: 20140127
  Serious: No
  Sender: FDA-Public Use
  Company Number: US-ABBOTT-12P-163-0957617-00

PATIENT
  Age: 51 Year
  Sex: 0
  Weight: 80.81 kg

DRUGS (4)
  1. HUMIRA 40 MG/0.8 ML PEN [Suspect]
     Indication: PSORIASIS
     Dates: start: 20120711, end: 20120711
  2. NEXIUM [Concomitant]
     Indication: GASTROOESOPHAGEAL REFLUX DISEASE
     Route: 048
  3. ALEVE [Concomitant]
     Indication: ARTHRALGIA
     Route: 048
  4. ALBUTEROL [Concomitant]
     Indication: ASTHMA

REACTIONS (9)
  - Fatigue [Recovered/Resolved]
  - Pain [Recovered/Resolved]
  - Incorrect dose administered [Unknown]
  - Anxiety [Unknown]
  - Headache [Recovered/Resolved]
  - Pain [Recovered/Resolved]
  - Arthralgia [Recovered/Resolved]
  - Pain in extremity [Recovered/Resolved]
  - Arthralgia [Recovered/Resolved]
